FAERS Safety Report 12920350 (Version 1)
Quarter: 2016Q4

REPORT INFORMATION
  Report Type: Spontaneous
  Country: US (occurrence: US)
  Receive Date: 20161105
  Receipt Date: 20161105
  Transmission Date: 20170207
  Serious: Yes (Life-Threatening)
  Sender: FDA-Public Use
  Company Number: None

PATIENT
  Age: 67 Year
  Sex: Male
  Weight: 130.5 kg

DRUGS (13)
  1. AXIRON [Concomitant]
     Active Substance: TESTOSTERONE
  2. ADDERALL [Concomitant]
     Active Substance: AMPHETAMINE ASPARTATE\AMPHETAMINE SULFATE\DEXTROAMPHETAMINE SACCHARATE\DEXTROAMPHETAMINE SULFATE
  3. CIALIS [Concomitant]
     Active Substance: TADALAFIL
  4. FLORISIMIDE [Concomitant]
  5. VALSARTAN 320 MG TABLETS USP [Suspect]
     Active Substance: VALSARTAN
     Indication: HYPERTENSION
     Dosage: ?          QUANTITY:90 TABLET(S);?
     Route: 048
     Dates: start: 20160101, end: 20161001
  6. INSULIN VIA PUMP [Concomitant]
  7. CPAP [Concomitant]
     Active Substance: DEVICE
  8. FLAXSEED [Concomitant]
     Active Substance: FLAX SEED
  9. FISH OIL [Concomitant]
     Active Substance: FISH OIL
  10. RANEXA [Concomitant]
     Active Substance: RANOLAZINE
  11. SYNTHROID [Concomitant]
     Active Substance: LEVOTHYROXINE SODIUM
  12. MS CONTINUE [Concomitant]
  13. ALLOPURINOL. [Concomitant]
     Active Substance: ALLOPURINOL

REACTIONS (1)
  - Blood pressure increased [None]

NARRATIVE: CASE EVENT DATE: 20161013
